FAERS Safety Report 6340949-6 (Version None)
Quarter: 2009Q3

REPORT INFORMATION
  Report Type: 
  Country: None (occurrence: None)
  Receive Date: 20090902
  Receipt Date: 20090902
  Transmission Date: 20100115
  Serious: Yes (Other)
  Sender: FDA-Public Use
  Company Number: None

PATIENT
  Sex: Male
  Weight: 36.4 kg

DRUGS (1)
  1. DIVALPROEX 250 MG MYLAN [Suspect]

REACTIONS (6)
  - AGGRESSION [None]
  - IMPAIRED HEALING [None]
  - INFECTION [None]
  - INJURY [None]
  - PRODUCT SUBSTITUTION ISSUE [None]
  - TENDON RUPTURE [None]
